FAERS Safety Report 19130656 (Version 1)
Quarter: 2021Q2

REPORT INFORMATION
  Report Type: Report from Study
  Country: CA (occurrence: CA)
  Receive Date: 20210413
  Receipt Date: 20210413
  Transmission Date: 20210717
  Serious: Yes (Hospitalization)
  Sender: FDA-Public Use
  Company Number: CA-BAUSCH-BL-2021-011754

PATIENT
  Age: 44 Year
  Sex: Female

DRUGS (9)
  1. TIOTROPIUM BROMIDE [Suspect]
     Active Substance: TIOTROPIUM BROMIDE
     Indication: ASTHMA
     Route: 048
  2. PULMICORT TURBUHALER [Suspect]
     Active Substance: BUDESONIDE
     Indication: ASTHMA
  3. VENLAFAXINE HYDROCHLORIDE. [Suspect]
     Active Substance: VENLAFAXINE HYDROCHLORIDE
     Indication: ASTHMA
     Route: 065
  4. SALBUTAMOL SULFATE [Suspect]
     Active Substance: ALBUTEROL SULFATE
     Indication: ASTHMA
  5. VENLAFAXINE HYDROCHLORIDE. [Suspect]
     Active Substance: VENLAFAXINE HYDROCHLORIDE
     Indication: ASTHMA
     Route: 065
  6. BREO ELLIPTA [Suspect]
     Active Substance: FLUTICASONE FUROATE\VILANTEROL TRIFENATATE
     Indication: ASTHMA
     Route: 065
  7. FLUTICASONE/SALMETEROL [Suspect]
     Active Substance: FLUTICASONE PROPIONATE\SALMETEROL XINAFOATE
     Indication: ASTHMA
     Route: 065
  8. NUCALA [Suspect]
     Active Substance: MEPOLIZUMAB
     Indication: PRODUCT USED FOR UNKNOWN INDICATION
     Route: 042
  9. FLOVENT DISKUS [Suspect]
     Active Substance: FLUTICASONE PROPIONATE
     Indication: PRODUCT USED FOR UNKNOWN INDICATION
     Route: 042

REACTIONS (19)
  - Productive cough [Recovered/Resolved]
  - Nasal disorder [Recovered/Resolved]
  - Neck pain [Recovered/Resolved]
  - Pain [Recovered/Resolved]
  - Wheezing [Recovered/Resolved]
  - Eosinophil count increased [Recovered/Resolved]
  - Loss of personal independence in daily activities [Recovered/Resolved]
  - Obstructive airways disorder [Recovered/Resolved]
  - Drug hypersensitivity [Recovered/Resolved]
  - Therapeutic product effect incomplete [Recovered/Resolved]
  - Forced expiratory volume increased [Recovered/Resolved]
  - Condition aggravated [Recovered/Resolved]
  - Dyspnoea [Recovered/Resolved]
  - Dyspnoea exertional [Recovered/Resolved]
  - Middle insomnia [Recovered/Resolved]
  - Joint injury [Recovered/Resolved]
  - Asthma [Recovered/Resolved]
  - Musculoskeletal stiffness [Recovered/Resolved]
  - Arthralgia [Recovered/Resolved]
